FAERS Safety Report 7783250-6 (Version None)
Quarter: 2011Q3

REPORT INFORMATION
  Report Type: 
  Country: None (occurrence: None)
  Receive Date: 20110928
  Receipt Date: 20110919
  Transmission Date: 20111222
  Serious: Yes (Other)
  Sender: FDA-Public Use
  Company Number: FR-JNJFOC-20110904011

PATIENT
  Sex: Female
  Weight: 55 kg

DRUGS (4)
  1. PRAZEPAM [Concomitant]
     Indication: ANXIETY
     Route: 048
     Dates: start: 20070116
  2. RISPERDAL CONSTA [Suspect]
     Indication: SCHIZOPHRENIA
     Route: 050
     Dates: start: 20090116, end: 20110715
  3. RISPERDAL [Suspect]
     Indication: PRODUCT USED FOR UNKNOWN INDICATION
     Route: 048
     Dates: start: 20090112
  4. LEPTICUR [Concomitant]
     Indication: EXTRAPYRAMIDAL DISORDER
     Route: 048
     Dates: start: 20080229

REACTIONS (1)
  - PITUITARY TUMOUR BENIGN [None]
